FAERS Safety Report 4656538-5 (Version None)
Quarter: 2005Q2

REPORT INFORMATION
  Report Type: 
  Country: None (occurrence: None)
  Receive Date: 20050505
  Receipt Date: 20050428
  Transmission Date: 20051028
  Serious: Yes (Hospitalization, Disabling)
  Sender: FDA-Public Use
  Company Number: 2005017707

PATIENT
  Age: 45 Year
  Sex: Female
  Weight: 83.3 kg

DRUGS (20)
  1. CARDENALIN (DOXAZOSIN) [Suspect]
     Indication: HYPERTENSION
     Dosage: 4 MG , ORAL
     Route: 048
     Dates: start: 20041223
  2. AMOXICILLIN [Suspect]
     Indication: NASOPHARYNGITIS
     Dosage: 3 TABLETS ( 3 IN 1 D), ORAL
     Route: 048
     Dates: start: 20050111, end: 20050115
  3. CARBOCISTEINE (CARBOCISTEINE) [Suspect]
     Indication: NASOPHARYNGITIS
     Dosage: 3 TABLETS (TID), ORAL
     Route: 048
     Dates: start: 20050111, end: 20050115
  4. ANTIBIOTICS (ANTIBIOTICS) [Suspect]
     Indication: NASOPHARYNGITIS
     Dosage: (TID), ORAL
     Route: 048
     Dates: start: 20050111, end: 20050115
  5. ALACEPRIL (ALACEPRIL) [Suspect]
     Indication: HYPERTENSION
     Dosage: (2 IN 1 D), ORAL
     Route: 048
  6. NITRENDIPINE (NITRENDIPINE) [Suspect]
     Indication: HYPERTENSION
     Dosage: (1 IN 1 D), ORAL
     Route: 048
  7. LEVOMEPROMAZINE MALEATE (LEVOMEPROMAZINE MALEATE) [Concomitant]
  8. LORAZEPAM [Concomitant]
  9. THIORIDAZINE HCL [Concomitant]
  10. TRIHEXYPHENIDYL HCL [Concomitant]
  11. ZOTEPINE (ZOTEPINE) [Concomitant]
  12. PROMETHAZINE HYDROCHLORIDE TAB [Concomitant]
  13. MAGNESIUM OXIDE (MAGNESIUM OXIDE) [Concomitant]
  14. SENNA LEAF (SENNA LEAF) [Concomitant]
  15. REBAMIPIDE (REBAMIPIDE) [Concomitant]
  16. FURSULTIAMINE (FURSULTIAMINE) [Concomitant]
  17. ZALTOPROFEN (ZALTOPROFEN) [Concomitant]
  18. ALACEPRIL (ALACEPRIL) [Concomitant]
  19. NITRENDIPINE (NITRENDIPINE) [Concomitant]
  20. ANALGESICS (ANALGESICS) [Concomitant]

REACTIONS (5)
  - ASTHENIA [None]
  - DIALYSIS [None]
  - NASOPHARYNGITIS [None]
  - RENAL FAILURE [None]
  - RHABDOMYOLYSIS [None]
